FAERS Safety Report 19220531 (Version 1)
Quarter: 2021Q2

REPORT INFORMATION
  Report Type: Spontaneous
  Country: US (occurrence: US)
  Receive Date: 20210506
  Receipt Date: 20210506
  Transmission Date: 20210717
  Serious: No
  Sender: FDA-Public Use
  Company Number: US-SA-2021SA145484

PATIENT
  Age: 38 Year
  Sex: Female

DRUGS (1)
  1. DUPIXENT [Suspect]
     Active Substance: DUPILUMAB
     Dosage: 300 MG, QOW
     Route: 058
     Dates: start: 201911

REACTIONS (11)
  - Dry skin [Unknown]
  - Skin exfoliation [Unknown]
  - Skin haemorrhage [Unknown]
  - Product dose omission issue [Unknown]
  - Shoulder operation [Unknown]
  - Pruritus [Unknown]
  - Dry eye [Unknown]
  - Visual impairment [Unknown]
  - Skin weeping [Unknown]
  - Endometrial ablation [Unknown]
  - Eczema [Unknown]

NARRATIVE: CASE EVENT DATE: 202104
